FAERS Safety Report 14322035 (Version 1)
Quarter: 2017Q4

REPORT INFORMATION
  Report Type: Spontaneous
  Country: US (occurrence: US)
  Receive Date: 20171225
  Receipt Date: 20171225
  Transmission Date: 20180321
  Serious: Yes (Death, Hospitalization)
  Sender: FDA-Public Use
  Company Number: PHEH2017US041146

PATIENT
  Age: 62 Year
  Sex: Female

DRUGS (1)
  1. GLEEVEC [Suspect]
     Active Substance: IMATINIB MESYLATE
     Indication: MALIGNANT MELANOMA
     Dosage: 400 MG, UNK
     Route: 048
     Dates: start: 20170117, end: 20170618

REACTIONS (4)
  - Rash pustular [Unknown]
  - Malignant neoplasm progression [Fatal]
  - Metastatic malignant melanoma [Fatal]
  - Herpes zoster disseminated [Recovered/Resolved]

NARRATIVE: CASE EVENT DATE: 20170618
